FAERS Safety Report 9414581 (Version 5)
Quarter: 2013Q4

REPORT INFORMATION
  Report Type: Report from Study
  Country: US (occurrence: US)
  Receive Date: 20130723
  Receipt Date: 20131004
  Transmission Date: 20140711
  Serious: Yes (Death, Hospitalization, Other)
  Sender: FDA-Public Use
  Company Number: US-PURDUE-USA-2013-0104584

PATIENT
  Age: 61 Year
  Sex: Male

DRUGS (19)
  1. OXYCONTIN (NDA 22-272) [Suspect]
     Indication: INTERVERTEBRAL DISC DEGENERATION
     Dosage: 30 MG, Q8H
     Route: 048
     Dates: start: 201012, end: 20130922
  2. OXYCONTIN (NDA 22-272) [Suspect]
     Indication: PAIN
     Dosage: 10 MG, Q8H
     Route: 048
     Dates: start: 200905
  3. OXYCONTIN (NDA 22-272) [Suspect]
     Indication: HAEMOCHROMATOSIS
     Dosage: 10 MG, Q12H
     Route: 048
     Dates: start: 2010
  4. OXYCONTIN (NDA 22-272) [Suspect]
     Dosage: UNK
  5. SORAFENIB [Suspect]
     Indication: ACUTE MYELOID LEUKAEMIA
  6. CYTARABINE [Concomitant]
     Indication: ACUTE MYELOID LEUKAEMIA
  7. DAUNORUBICIN [Concomitant]
     Indication: ACUTE MYELOID LEUKAEMIA
  8. PRILOSEC                           /00661201/ [Concomitant]
     Indication: PRODUCT USED FOR UNKNOWN INDICATION
  9. VITAMIN D3 [Concomitant]
     Indication: PRODUCT USED FOR UNKNOWN INDICATION
  10. LISINOPRIL [Concomitant]
     Indication: PRODUCT USED FOR UNKNOWN INDICATION
  11. NORVASC [Concomitant]
     Indication: PRODUCT USED FOR UNKNOWN INDICATION
  12. AXIRON [Concomitant]
     Indication: PRODUCT USED FOR UNKNOWN INDICATION
  13. TRILEPTAL [Concomitant]
     Indication: PRODUCT USED FOR UNKNOWN INDICATION
  14. BAYER ASPIRIN [Concomitant]
     Indication: PRODUCT USED FOR UNKNOWN INDICATION
  15. TESTIM [Concomitant]
     Indication: PRODUCT USED FOR UNKNOWN INDICATION
  16. OXYCODONE AND ACETAMINOPHEN [Concomitant]
     Indication: PRODUCT USED FOR UNKNOWN INDICATION
  17. ANTIVERT                           /00007101/ [Concomitant]
     Indication: PRODUCT USED FOR UNKNOWN INDICATION
  18. ACIPHEX [Concomitant]
     Indication: PRODUCT USED FOR UNKNOWN INDICATION
  19. PERCOCET                           /00867901/ [Concomitant]
     Indication: BREAKTHROUGH PAIN
     Dosage: UNK
     Route: 048
     Dates: start: 2008

REACTIONS (16)
  - Acute myeloid leukaemia [Fatal]
  - Ventricular tachycardia [Recovered/Resolved]
  - Pulmonary haemorrhage [Recovered/Resolved]
  - Hypoxia [Unknown]
  - Respiratory failure [Recovered/Resolved]
  - Psychotic disorder [Unknown]
  - Delirium [Unknown]
  - Clostridium difficile colitis [Recovered/Resolved]
  - Large intestine polyp [Unknown]
  - Pneumonia [Unknown]
  - Fatigue [Unknown]
  - Drug ineffective [Unknown]
  - Agitation [Unknown]
  - Hypertension [Unknown]
  - Back pain [Unknown]
  - Cold sweat [Unknown]
